FAERS Safety Report 18412265 (Version 1)
Quarter: 2020Q4

REPORT INFORMATION
  Report Type: Spontaneous
  Country: US (occurrence: US)
  Receive Date: 20201021
  Receipt Date: 20201021
  Transmission Date: 20210114
  Serious: No
  Sender: FDA-Public Use
  Company Number: US-ELI_LILLY_AND_COMPANY-US202005003219

PATIENT

DRUGS (1)
  1. EMGALITY [Suspect]
     Active Substance: GALCANEZUMAB-GNLM
     Indication: PRODUCT USED FOR UNKNOWN INDICATION
     Dosage: 1 DOSAGE FORM, UNKNOWN
     Route: 065
     Dates: end: 201911

REACTIONS (10)
  - Muscle spasms [Unknown]
  - Alopecia [Unknown]
  - Eczema [Unknown]
  - Rash [Unknown]
  - Weight increased [Unknown]
  - Vertigo [Unknown]
  - Hypersensitivity [Unknown]
  - Blood pressure increased [Unknown]
  - Dizziness [Unknown]
  - Fatigue [Unknown]
